FAERS Safety Report 4380072-3 (Version None)
Quarter: 2004Q2

REPORT INFORMATION
  Report Type: 
  Country: None (occurrence: None)
  Receive Date: 20040614
  Receipt Date: 20040526
  Transmission Date: 20050107
  Serious: Yes (Disabling)
  Sender: FDA-Public Use
  Company Number: DSA_24484_2004

PATIENT
  Age: 63 Year
  Sex: Male

DRUGS (9)
  1. DILTIAZEM HCL [Suspect]
     Indication: CORONARY ARTERY DISEASE
     Dosage: 300 MG Q DAY PO
     Route: 048
     Dates: start: 20010411, end: 20040312
  2. COAPROVEL [Concomitant]
  3. GLUCOPHAGE [Concomitant]
  4. PLAVIX [Concomitant]
  5. CORDIPATCH [Concomitant]
  6. UMULINE PROFIL [Concomitant]
  7. LIPANTHYL [Concomitant]
  8. KARDEGIC [Concomitant]
  9. PARIET [Concomitant]

REACTIONS (1)
  - PARKINSON'S DISEASE [None]
